FAERS Safety Report 17398192 (Version 1)
Quarter: 2020Q1

REPORT INFORMATION
  Report Type: Spontaneous
  Country: FR (occurrence: FR)
  Receive Date: 20200210
  Receipt Date: 20200210
  Transmission Date: 20200409
  Serious: Yes (Hospitalization)
  Sender: FDA-Public Use
  Company Number: FR-MYLANLABS-2020M1014786

PATIENT
  Age: 63 Year
  Sex: Male

DRUGS (3)
  1. TOCOPHEROL [Suspect]
     Active Substance: TOCOPHEROL
     Indication: CUTANEOUS CALCIFICATION
     Dosage: UNK
     Route: 065
  2. PENTOXIFYLLINE. [Suspect]
     Active Substance: PENTOXIFYLLINE
     Indication: CUTANEOUS CALCIFICATION
     Dosage: UNK
     Route: 065
  3. CLODRONIC ACID [Suspect]
     Active Substance: CLODRONIC ACID
     Indication: CUTANEOUS CALCIFICATION
     Dosage: UNK
     Route: 065

REACTIONS (1)
  - Drug ineffective [Unknown]
